FAERS Safety Report 18196862 (Version 2)
Quarter: 2020Q3

REPORT INFORMATION
  Report Type: Spontaneous
  Country: US (occurrence: US)
  Receive Date: 20200826
  Receipt Date: 20200903
  Transmission Date: 20201103
  Serious: Yes (Life-Threatening, Hospitalization, Other)
  Sender: FDA-Public Use
  Company Number: US-ACCORD-197452

PATIENT
  Age: 35 Year
  Sex: Female

DRUGS (3)
  1. LAMOTRIGINE. [Concomitant]
     Active Substance: LAMOTRIGINE
  2. QUETIAPINE. [Suspect]
     Active Substance: QUETIAPINE
     Dosage: INGESTION
     Route: 048
  3. NOREPINEPHRINE. [Concomitant]
     Active Substance: NOREPINEPHRINE
     Indication: HYPOTENSION
     Dosage: 0.48 UG/KG/MIN

REACTIONS (10)
  - Circulatory collapse [Recovering/Resolving]
  - Status epilepticus [Recovered/Resolved]
  - Haemodynamic instability [Recovered/Resolved]
  - Encephalopathy [Recovered/Resolved]
  - Pleural effusion [Recovering/Resolving]
  - Mucosal dryness [Recovered/Resolved]
  - Drug level increased [Recovering/Resolving]
  - Intentional overdose [Unknown]
  - Tachycardia [Recovered/Resolved]
  - Electrocardiogram QT prolonged [Recovered/Resolved]
